FAERS Safety Report 17278360 (Version 1)
Quarter: 2020Q1

REPORT INFORMATION
  Report Type: Spontaneous
  Country: US (occurrence: US)
  Receive Date: 20200116
  Receipt Date: 20200116
  Transmission Date: 20200409
  Serious: Yes (Other)
  Sender: FDA-Public Use
  Company Number: US-EYEVANCE PHARMACEUTICALS-2020EYE00004

PATIENT
  Sex: Female

DRUGS (1)
  1. FRESHKOTE [Suspect]
     Active Substance: POLYVINYL ALCOHOL\POVIDONE

REACTIONS (3)
  - Eye infection bacterial [Recovered/Resolved]
  - Dry eye [Unknown]
  - Product dose omission [Recovered/Resolved]
